FAERS Safety Report 4884792-3 (Version None)
Quarter: 2006Q1

REPORT INFORMATION
  Report Type: 
  Country: None (occurrence: None)
  Receive Date: 20060117
  Receipt Date: 20060104
  Transmission Date: 20060701
  Serious: Yes (Hospitalization, Other)
  Sender: FDA-Public Use
  Company Number: 2006002702

PATIENT
  Sex: Female
  Weight: 58.9676 kg

DRUGS (3)
  1. NEURONTIN [Suspect]
     Indication: NEUROPATHY
     Dosage: 400 MG (100 MG, 4 IN 1 D), UNKNOWN
  2. XALATAN [Suspect]
     Indication: GLAUCOMA
     Dosage: (1 DROP, 1 IN 1 D), OPHTHALMIC
     Route: 047
  3. TIMOPTIC [Concomitant]

REACTIONS (11)
  - ARTHRITIS [None]
  - BODY HEIGHT DECREASED [None]
  - BURNING SENSATION [None]
  - CONDITION AGGRAVATED [None]
  - DIVERTICULITIS [None]
  - DYSKINESIA [None]
  - FATIGUE [None]
  - GLAUCOMA [None]
  - MYOCARDIAL INFARCTION [None]
  - PALMAR ERYTHEMA [None]
  - SPINAL COLUMN STENOSIS [None]
